FAERS Safety Report 8367962-1 (Version None)
Quarter: 2012Q2

REPORT INFORMATION
  Report Type: 
  Country: None (occurrence: None)
  Receive Date: 20120517
  Receipt Date: 20120516
  Transmission Date: 20120825
  Serious: Yes (Hospitalization)
  Sender: FDA-Public Use
  Company Number: US-ROCHE-1058581

PATIENT
  Sex: Male
  Weight: 88.5 kg

DRUGS (3)
  1. LOVASTATIN [Concomitant]
  2. VEMURAFENIB [Suspect]
     Indication: MALIGNANT MELANOMA
     Dosage: DATE OF LAST DOSE PRIOR TO SAE: 08/APR/2012
     Route: 048
     Dates: start: 20120305, end: 20120408
  3. VEMURAFENIB [Suspect]
     Dates: start: 20120501

REACTIONS (1)
  - LIVER INJURY [None]
